FAERS Safety Report 23574312 (Version 2)
Quarter: 2024Q1

REPORT INFORMATION
  Report Type: Other
  Country: CN (occurrence: CN)
  Receive Date: 20240228
  Receipt Date: 20240229
  Transmission Date: 20240410
  Serious: Yes (Hospitalization)
  Sender: FDA-Public Use
  Company Number: CN-ASTELLAS-2024US006038

PATIENT
  Age: 54 Year
  Sex: Male

DRUGS (6)
  1. MIRABEGRON [Suspect]
     Active Substance: MIRABEGRON
     Indication: Pneumonia
     Route: 048
     Dates: start: 20240221, end: 20240222
  2. MIRABEGRON [Suspect]
     Active Substance: MIRABEGRON
     Indication: Asthma
  3. MIRABEGRON [Suspect]
     Active Substance: MIRABEGRON
     Indication: Type 2 diabetes mellitus
  4. TAMSULOSIN [Suspect]
     Active Substance: TAMSULOSIN
     Indication: Pneumonia
     Dosage: 0.2 MG, ONCE DAILY
     Route: 048
     Dates: start: 20240221, end: 20240222
  5. TAMSULOSIN [Suspect]
     Active Substance: TAMSULOSIN
     Indication: Asthma
  6. TAMSULOSIN [Suspect]
     Active Substance: TAMSULOSIN
     Indication: Type 2 diabetes mellitus

REACTIONS (9)
  - Chest discomfort [Recovering/Resolving]
  - Palpitations [Recovering/Resolving]
  - Dizziness [Recovering/Resolving]
  - Nausea [Recovering/Resolving]
  - Vomiting [Recovering/Resolving]
  - Decreased appetite [Recovering/Resolving]
  - Feeding disorder [Recovering/Resolving]
  - Vertigo [Recovering/Resolving]
  - Product use in unapproved indication [Unknown]

NARRATIVE: CASE EVENT DATE: 20240221
